FAERS Safety Report 4818274-1 (Version None)
Quarter: 2005Q3

REPORT INFORMATION
  Report Type: 
  Country: None (occurrence: None)
  Receive Date: 20050929
  Receipt Date: 20050701
  Transmission Date: 20060218
  Serious: No
  Sender: FDA-Public Use
  Company Number: 05P-163-0304745-00

PATIENT
  Age: 59 Year
  Sex: Female
  Weight: 80.7403 kg

DRUGS (8)
  1. HUMIRA [Suspect]
     Indication: RHEUMATOID ARTHRITIS
     Dosage: 40 MG, 1 IN 2 WK, SUBCUTANEOUS
     Route: 058
     Dates: start: 20050422
  2. LEFLUNOMIDE [Concomitant]
  3. OXAPROZIN [Concomitant]
  4. CLIMARI PATCH [Concomitant]
  5. FLUOXETINE HYDROCHLORIDE [Concomitant]
  6. LITHIUM [Concomitant]
  7. HYDROXYCHLOR [Concomitant]
  8. COLESTIPOL HYDROCHLORIDE [Concomitant]

REACTIONS (1)
  - HAEMATOMA [None]
